FAERS Safety Report 8585160-3 (Version None)
Quarter: 2012Q3

REPORT INFORMATION
  Report Type: 
  Country: None (occurrence: None)
  Receive Date: 20120810
  Receipt Date: 20120806
  Transmission Date: 20120928
  Serious: Yes (Death, Other)
  Sender: FDA-Public Use
  Company Number: PHHY2012FR068005

PATIENT
  Sex: Male

DRUGS (21)
  1. HEPARIN CALCIUM [Suspect]
     Indication: PROPHYLAXIS
     Dosage: 7500 (UNITS UNKNOWN), ONCE DAILY
     Route: 042
     Dates: end: 20120321
  2. SOLU-MEDROL [Suspect]
     Indication: IMMUNOSUPPRESSION
     Dosage: UNK
     Route: 042
  3. OMEPRAZOLE [Suspect]
     Indication: PROPHYLAXIS
     Dosage: UNK
     Route: 042
  4. GANCICLOVIR SODIUM [Concomitant]
     Dosage: UNK
     Dates: end: 20120506
  5. BACTRIM DS [Suspect]
     Indication: PROPHYLAXIS
     Dosage: 1 DF, QD
     Route: 048
     Dates: end: 20120405
  6. SANDIMMUNE [Suspect]
     Indication: PROPHYLAXIS
     Route: 042
     Dates: start: 20120123, end: 20120404
  7. VFEND [Suspect]
     Indication: PROPHYLAXIS
     Dosage: 400 UNK, QD
     Route: 042
  8. ALBUMIN (HUMAN) [Suspect]
     Dosage: 20 G, QD
     Route: 042
     Dates: end: 20120306
  9. EFFEXOR [Suspect]
     Dosage: UNK
     Route: 048
     Dates: start: 20120313, end: 20120322
  10. NICARDIPINE HCL [Suspect]
     Indication: HYPERTENSION
     Dosage: 50 MG, QD
     Route: 048
     Dates: end: 20120415
  11. VALGANCICLOVIR [Suspect]
     Indication: PROPHYLAXIS
     Dosage: 900 MG, QD
     Route: 048
     Dates: start: 20120310, end: 20120316
  12. CELLCEPT [Concomitant]
  13. DELURSAN [Suspect]
     Indication: CHOLESTASIS
     Dosage: 1.5 G, UNK
     Route: 048
  14. PHENOXYMETHYL PENICILLIN [Suspect]
     Indication: PROPHYLAXIS
     Dosage: 2 MIU, QD
     Route: 048
     Dates: end: 20120322
  15. FOLIC ACID [Suspect]
     Indication: VITAMIN SUPPLEMENTATION
     Dosage: UNK
     Dates: end: 20120405
  16. TRANXENE [Suspect]
     Indication: ANXIETY
     Dosage: UNK
     Route: 048
     Dates: start: 20120313, end: 20120316
  17. VIDAZA [Concomitant]
     Dosage: UNK
     Dates: start: 20110201
  18. LEVOTHYROXINE SODIUM [Suspect]
     Indication: HYPOTHYROIDISM
     Dosage: 150 UG, QD
     Route: 042
  19. ZOLPIDEM TARTRATE [Suspect]
     Indication: INSOMNIA
     Dosage: 10 MG, QD
     Route: 048
     Dates: end: 20120318
  20. TIORFAN [Suspect]
     Indication: PROPHYLAXIS AGAINST DIARRHOEA
     Dosage: 600 MG, QD
     Route: 048
     Dates: end: 20120425
  21. PLITICAN [Suspect]
     Indication: PROPHYLAXIS
     Dosage: UNK
     Route: 042
     Dates: start: 20120314, end: 20120319

REACTIONS (17)
  - THROMBOTIC MICROANGIOPATHY [None]
  - HUMAN HERPESVIRUS 6 INFECTION [None]
  - CONFUSIONAL STATE [None]
  - MULTI-ORGAN FAILURE [None]
  - GRAFT VERSUS HOST DISEASE [None]
  - RENAL FAILURE [None]
  - HAEMOLYSIS [None]
  - RENAL IMPAIRMENT [None]
  - CYTOMEGALOVIRUS INFECTION [None]
  - HYPERURICAEMIA [None]
  - RED BLOOD CELL SCHISTOCYTES PRESENT [None]
  - THROMBOCYTOPENIA [None]
  - HAPTOGLOBIN ABNORMAL [None]
  - NERVOUS SYSTEM DISORDER [None]
  - KUSSMAUL RESPIRATION [None]
  - THROMBOCYTOPENIC PURPURA [None]
  - HAEMATOTOXICITY [None]
